FAERS Safety Report 11565959 (Version 3)
Quarter: 2016Q1

REPORT INFORMATION
  Report Type: Spontaneous
  Country: US (occurrence: US)
  Receive Date: 20150928
  Receipt Date: 20160113
  Transmission Date: 20160525
  Serious: Yes (Death, Other)
  Sender: FDA-Public Use
  Company Number: US-ASTRAZENECA-2015SE91940

PATIENT
  Age: 22128 Day
  Sex: Female

DRUGS (10)
  1. TOPOTECAN [Concomitant]
     Active Substance: TOPOTECAN\TOPOTECAN HYDROCHLORIDE
     Dates: start: 20100118, end: 20101111
  2. AVASTIN [Concomitant]
     Active Substance: BEVACIZUMAB
     Dates: start: 20120731, end: 20131219
  3. ADRIAMYCIN [Concomitant]
     Active Substance: DOXORUBICIN HYDROCHLORIDE
     Dates: start: 1989, end: 1989
  4. CARBOPLATIN. [Concomitant]
     Active Substance: CARBOPLATIN
     Dates: start: 20070830, end: 20080731
  5. CISPLATIN. [Concomitant]
     Active Substance: CISPLATIN
     Dates: start: 20070830, end: 20080731
  6. CYTOXAN [Concomitant]
     Active Substance: CYCLOPHOSPHAMIDE
     Dates: start: 1989, end: 1989
  7. CARBOPLATIN. [Concomitant]
     Active Substance: CARBOPLATIN
     Dates: start: 20120731, end: 20131219
  8. CARBOPLATIN. [Concomitant]
     Active Substance: CARBOPLATIN
     Dates: start: 20110503, end: 20111227
  9. PACLITAXEL. [Concomitant]
     Active Substance: PACLITAXEL
     Dates: start: 20070830, end: 20080731
  10. OLAPARIB [Suspect]
     Active Substance: OLAPARIB
     Indication: MALIGNANT PERITONEAL NEOPLASM
     Route: 048
     Dates: start: 20150224, end: 20150410

REACTIONS (3)
  - Myelodysplastic syndrome [Fatal]
  - Off label use [Unknown]
  - Product use issue [Unknown]

NARRATIVE: CASE EVENT DATE: 20150614
